FAERS Safety Report 22187624 (Version 1)
Quarter: 2023Q2

REPORT INFORMATION
  Report Type: Spontaneous
  Country: FR (occurrence: FR)
  Receive Date: 20230407
  Receipt Date: 20230407
  Transmission Date: 20230722
  Serious: Yes (Hospitalization, Other)
  Sender: FDA-Public Use
  Company Number: None

PATIENT
  Age: 82 Year
  Sex: Male
  Weight: 75 kg

DRUGS (1)
  1. OPDIVO [Suspect]
     Active Substance: NIVOLUMAB
     Indication: Malignant melanoma
     Route: 042
     Dates: start: 20220323, end: 20220323

REACTIONS (3)
  - Myocarditis [Recovering/Resolving]
  - Myositis [Recovering/Resolving]
  - Diaphragm muscle weakness [Recovering/Resolving]

NARRATIVE: CASE EVENT DATE: 20220401
